FAERS Safety Report 6376022-0 (Version None)
Quarter: 2009Q3

REPORT INFORMATION
  Report Type: 
  Country: None (occurrence: None)
  Receive Date: 20090924
  Receipt Date: 20090915
  Transmission Date: 20100115
  Serious: Yes (Other)
  Sender: FDA-Public Use
  Company Number: PHHY2009FR39613

PATIENT
  Age: 41 Year
  Sex: Male

DRUGS (3)
  1. TRILEPTAL [Suspect]
     Indication: PARTIAL SEIZURES
     Dosage: 300 MG, TID
  2. DOPAMAX [Concomitant]
     Dosage: 200 MG
  3. DEPAKENE [Concomitant]
     Dosage: 500 MG

REACTIONS (3)
  - ATRIAL TACHYCARDIA [None]
  - CARDIAC VENTRICULAR DISORDER [None]
  - EXTRASYSTOLES [None]
